FAERS Safety Report 11310977 (Version 2)
Quarter: 2015Q3

REPORT INFORMATION
  Report Type: Spontaneous
  Country: DE (occurrence: DE)
  Receive Date: 20150727
  Receipt Date: 20150809
  Transmission Date: 20151125
  Serious: Yes (Other)
  Sender: FDA-Public Use
  Company Number: DE-TAKEDA-2015TJP013582

PATIENT
  Age: 63 Year
  Sex: Male
  Weight: 80 kg

DRUGS (3)
  1. BRINTELLIX [Suspect]
     Active Substance: VORTIOXETINE HYDROBROMIDE
     Indication: DEPRESSION
     Dosage: 10 MG, QD
     Route: 048
     Dates: start: 20150708, end: 20150713
  2. RAMIPRIL. [Concomitant]
     Active Substance: RAMIPRIL
     Indication: HYPERTENSION
     Dosage: 2.5 MG, UNK
     Route: 048
  3. RAMIPRIL. [Concomitant]
     Active Substance: RAMIPRIL
     Dosage: DOSAGE INCREASED TO UNKNOWN DOSAGE
     Route: 048

REACTIONS (1)
  - Hypertension [Recovering/Resolving]

NARRATIVE: CASE EVENT DATE: 20150708
